FAERS Safety Report 6372858-0 (Version None)
Quarter: 2009Q3

REPORT INFORMATION
  Report Type: 
  Country: None (occurrence: None)
  Receive Date: 20090924
  Receipt Date: 20081118
  Transmission Date: 20100115
  Serious: Yes (Other)
  Sender: FDA-Public Use
  Company Number: US-ASTRAZENECA-2008UW25889

PATIENT
  Age: 50 Year
  Sex: Female
  Weight: 81.6 kg

DRUGS (6)
  1. SEROQUEL [Suspect]
     Indication: BIPOLAR DISORDER
     Dosage: 50 MG THREE TIMES DAILY AND 150 MG AT BEDTIME
     Route: 048
  2. SEROQUEL [Suspect]
     Route: 048
     Dates: start: 20081118
  3. ZOLOFT [Concomitant]
  4. LAMICTAL [Concomitant]
  5. OXYCODONE HCL AND ACETAMINOPHEN [Concomitant]
     Indication: ANALGESIA
  6. LEVOXYL [Concomitant]

REACTIONS (19)
  - AMNESIA [None]
  - ASTHENIA [None]
  - BLOOD PRESSURE FLUCTUATION [None]
  - CONFUSIONAL STATE [None]
  - CONSTIPATION [None]
  - DISTURBANCE IN ATTENTION [None]
  - DRY MOUTH [None]
  - GAIT DISTURBANCE [None]
  - HEADACHE [None]
  - HEART RATE INCREASED [None]
  - HYPERHIDROSIS [None]
  - MOOD ALTERED [None]
  - NASAL CONGESTION [None]
  - NEUROLEPTIC MALIGNANT SYNDROME [None]
  - OEDEMA PERIPHERAL [None]
  - OROPHARYNGEAL PAIN [None]
  - PARAESTHESIA [None]
  - PYREXIA [None]
  - SPEECH DISORDER [None]
